FAERS Safety Report 14246314 (Version 1)
Quarter: 2017Q4

REPORT INFORMATION
  Report Type: Spontaneous
  Country: US (occurrence: US)
  Receive Date: 20171204
  Receipt Date: 20171204
  Transmission Date: 20180321
  Serious: No
  Sender: FDA-Public Use
  Company Number: US-ALKABELLO-2017AA003759

PATIENT
  Age: 9 Year
  Sex: Female

DRUGS (2)
  1. DAE BULK (1268) CARYA ILLINOINENSIS [Suspect]
     Active Substance: CARYA ILLINOINENSIS POLLEN
  2. DAE BULK (1268) CARYA ILLINOINENSIS [Suspect]
     Active Substance: CARYA ILLINOINENSIS POLLEN

REACTIONS (1)
  - False negative investigation result [Unknown]
